FAERS Safety Report 19960419 (Version 1)
Quarter: 2021Q4

REPORT INFORMATION
  Report Type: Spontaneous
  Country: US (occurrence: US)
  Receive Date: 20211015
  Receipt Date: 20211015
  Transmission Date: 20220303
  Serious: No
  Sender: FDA-Public Use
  Company Number: US-COLLEGIUM PHARMACEUTICAL, INC.-2021CGM00197

PATIENT
  Sex: Female
  Weight: 83.9 kg

DRUGS (12)
  1. NUCYNTA ER [Suspect]
     Active Substance: TAPENTADOL HYDROCHLORIDE
     Indication: Neuropathy peripheral
     Dosage: 100 MG, 2X/DAY
     Route: 048
     Dates: start: 2017, end: 2018
  2. NUCYNTA ER [Suspect]
     Active Substance: TAPENTADOL HYDROCHLORIDE
     Indication: Connective tissue disorder
     Dosage: 50 MG, 2X/DAY
     Route: 048
     Dates: start: 2018
  3. NUCYNTA ER [Suspect]
     Active Substance: TAPENTADOL HYDROCHLORIDE
     Indication: Psoriatic arthropathy
  4. NUCYNTA ER [Suspect]
     Active Substance: TAPENTADOL HYDROCHLORIDE
     Indication: Diabetic neuropathy
  5. NUCYNTA ER [Suspect]
     Active Substance: TAPENTADOL HYDROCHLORIDE
     Indication: Pain
  6. NUCYNTA ER [Suspect]
     Active Substance: TAPENTADOL HYDROCHLORIDE
     Indication: Discomfort
  7. MORPHINE [Suspect]
     Active Substance: MORPHINE
     Indication: Pain
     Dosage: UNK
  8. ^TAJEO^ (PRESUMED TOUJEO) [Concomitant]
     Dosage: UNK, 1X/DAY
  9. NOVOLOG [Concomitant]
     Active Substance: INSULIN ASPART
     Dosage: SLIDING SCALE
  10. ESTRADIOL [Concomitant]
     Active Substance: ESTRADIOL
  11. PROGESTERONE [Concomitant]
     Active Substance: PROGESTERONE
  12. ZETIA [Concomitant]
     Active Substance: EZETIMIBE

REACTIONS (2)
  - Nausea [Recovering/Resolving]
  - Therapeutic product effect incomplete [Not Recovered/Not Resolved]

NARRATIVE: CASE EVENT DATE: 20170101
